FAERS Safety Report 25817045 (Version 1)
Quarter: 2025Q3

REPORT INFORMATION
  Report Type: Spontaneous
  Country: EU (occurrence: EU)
  Receive Date: 20250918
  Receipt Date: 20250918
  Transmission Date: 20251021
  Serious: Yes (Hospitalization)
  Sender: MYLAN
  Company Number: None

PATIENT
  Age: 45 Year
  Sex: Male

DRUGS (8)
  1. TRIAMCINOLONE HEXACETONIDE [Suspect]
     Active Substance: TRIAMCINOLONE HEXACETONIDE
     Indication: Joint injury
     Dates: start: 20250902, end: 20250902
  2. TRIAMCINOLONE HEXACETONIDE [Suspect]
     Active Substance: TRIAMCINOLONE HEXACETONIDE
     Route: 065
     Dates: start: 20250902, end: 20250902
  3. TRIAMCINOLONE HEXACETONIDE [Suspect]
     Active Substance: TRIAMCINOLONE HEXACETONIDE
     Route: 065
     Dates: start: 20250902, end: 20250902
  4. TRIAMCINOLONE HEXACETONIDE [Suspect]
     Active Substance: TRIAMCINOLONE HEXACETONIDE
     Dates: start: 20250902, end: 20250902
  5. LIDOCAINE [Suspect]
     Active Substance: LIDOCAINE
     Indication: Joint injury
     Dates: start: 20250902, end: 20250902
  6. LIDOCAINE [Suspect]
     Active Substance: LIDOCAINE
     Route: 065
     Dates: start: 20250902, end: 20250902
  7. LIDOCAINE [Suspect]
     Active Substance: LIDOCAINE
     Route: 065
     Dates: start: 20250902, end: 20250902
  8. LIDOCAINE [Suspect]
     Active Substance: LIDOCAINE
     Dates: start: 20250902, end: 20250902

REACTIONS (5)
  - Synovial fluid crystal [Recovering/Resolving]
  - Arthritis bacterial [Recovering/Resolving]
  - Joint swelling [Recovering/Resolving]
  - Arthralgia [Recovering/Resolving]
  - Pyrexia [Recovering/Resolving]

NARRATIVE: CASE EVENT DATE: 20250902
